FAERS Safety Report 16779534 (Version 1)
Quarter: 2019Q3

REPORT INFORMATION
  Report Type: Spontaneous
  Country: NL (occurrence: NL)
  Receive Date: 20190906
  Receipt Date: 20190906
  Transmission Date: 20191005
  Serious: Yes (Hospitalization)
  Sender: FDA-Public Use
  Company Number: NL-ACCORD-154036

PATIENT
  Age: 68 Year
  Sex: Female
  Weight: 77 kg

DRUGS (10)
  1. OMEPRAZOLE. [Concomitant]
     Active Substance: OMEPRAZOLE
     Dosage: USE 20 MG ORALLY 1 X PER DAY
  2. SIMVASTATIN. [Concomitant]
     Active Substance: SIMVASTATIN
  3. SIMVASTATIN. [Concomitant]
     Active Substance: SIMVASTATIN
     Dosage: USE 40 MG ORALLY 1 X PER DAY
  4. METOCLOPRAMIDE. [Concomitant]
     Active Substance: METOCLOPRAMIDE
     Dosage: USE 10 MG ORALLY 3 TIMES A DAY IF NECESSARY IN CASE OF NAUSEA
  5. BISOPROLOL [Concomitant]
     Active Substance: BISOPROLOL
     Dosage: 10 MG ORALLY 1 X PER DAY
  6. MAGNESIUM HYDROXIDE. [Concomitant]
     Active Substance: MAGNESIUM HYDROXIDE
     Dosage: USE 724 MG ORALLY 3 TIMES A DAY IF NECESSARY WITH REFLUX
  7. OXALIPLATIN. [Suspect]
     Active Substance: OXALIPLATIN
     Indication: OESOPHAGEAL SQUAMOUS CELL CARCINOMA METASTATIC
     Dosage: 130MG / M2 1X PER 3 WEEKS IN COMBINATION WITH CAPECITABINE
     Dates: start: 20190702
  8. METOCLOPRAMIDE. [Concomitant]
     Active Substance: METOCLOPRAMIDE
     Dosage: USE 10 MG ORALLY 3 TIMES A DAY IF NECESSARY IN CASE OF NAUSEA
  9. HYDROCHLOROTHIAZIDE. [Concomitant]
     Active Substance: HYDROCHLOROTHIAZIDE
  10. CAPECITABINE. [Concomitant]
     Active Substance: CAPECITABINE
     Dosage: 1800 MG ORALLY 2 X PER DAY

REACTIONS (6)
  - Laryngospasm [Recovered/Resolved]
  - Eyelid ptosis [Recovered/Resolved]
  - Oxygen saturation decreased [Recovered/Resolved]
  - Stridor [Recovered/Resolved]
  - Presyncope [Recovered/Resolved]
  - Muscular weakness [Recovered/Resolved]

NARRATIVE: CASE EVENT DATE: 20190725
